FAERS Safety Report 5618923-4 (Version None)
Quarter: 2008Q1

REPORT INFORMATION
  Report Type: 
  Country: None (occurrence: None)
  Receive Date: 20080207
  Receipt Date: 20080131
  Transmission Date: 20080703
  Serious: Yes (Death, Hospitalization)
  Sender: FDA-Public Use
  Company Number: GB-SANOFI-SYNTHELABO-F01200800170

PATIENT
  Sex: Female
  Weight: 52.3 kg

DRUGS (10)
  1. VIOXX [Concomitant]
     Indication: PAIN
     Route: 048
  2. LOSEC I.V. [Concomitant]
     Route: 048
  3. CODEINE PHOSPHATE [Concomitant]
     Indication: DIARRHOEA
     Route: 048
  4. IMODIUM [Concomitant]
     Indication: DIARRHOEA
     Route: 048
  5. ZOFRAN [Concomitant]
     Indication: NAUSEA
     Route: 048
  6. DEXAMETHASONE TAB [Concomitant]
     Route: 048
  7. OXYNORM [Concomitant]
     Indication: PAIN
     Route: 048
  8. OXYCONTIN [Concomitant]
     Indication: PAIN
     Route: 048
  9. DOCETAXEL [Suspect]
     Route: 042
     Dates: start: 20031008, end: 20031008
  10. OXALIPLATIN [Suspect]
     Indication: SMALL INTESTINE CARCINOMA METASTATIC
     Route: 042
     Dates: start: 20031008, end: 20031008

REACTIONS (2)
  - SMALL INTESTINAL OBSTRUCTION [None]
  - SMALL INTESTINE CARCINOMA [None]
